FAERS Safety Report 4850806-X (Version None)
Quarter: 2005Q4

REPORT INFORMATION
  Report Type: 
  Country: None (occurrence: None)
  Receive Date: 20051208
  Receipt Date: 20051125
  Transmission Date: 20060501
  Serious: Yes (Other)
  Sender: FDA-Public Use
  Company Number: GB200511002783

PATIENT
  Sex: Female
  Weight: 54 kg

DRUGS (2)
  1. STRATTERA [Suspect]
     Indication: ATTENTION DEFICIT/HYPERACTIVITY DISORDER
     Dosage: 60 MG, ORAL
     Route: 048
     Dates: start: 20051021, end: 20051109
  2. CONCERTA [Concomitant]

REACTIONS (3)
  - AGGRESSION [None]
  - HEAD BANGING [None]
  - INTENTIONAL SELF-INJURY [None]
